FAERS Safety Report 7806048-9 (Version None)
Quarter: 2011Q4

REPORT INFORMATION
  Report Type: 
  Country: None (occurrence: None)
  Receive Date: 20111011
  Receipt Date: 20110930
  Transmission Date: 20120403
  Serious: Yes (Hospitalization)
  Sender: FDA-Public Use
  Company Number: CA-JNJFOC-20110905042

PATIENT
  Sex: Female

DRUGS (12)
  1. ATENOLOL [Concomitant]
     Route: 065
  2. TYLENOL W/ CODEINE NO. 3 [Concomitant]
     Route: 065
  3. ADVAIR DISKUS 100/50 [Concomitant]
     Route: 065
  4. LIPITOR [Concomitant]
     Route: 065
  5. VITAMIN B-12 [Concomitant]
     Route: 065
  6. REMICADE [Suspect]
     Route: 042
     Dates: start: 20090101
  7. VENLAFAXINE [Concomitant]
     Route: 065
  8. POTASSIUM [Concomitant]
     Route: 065
  9. VENTOLIN [Concomitant]
     Route: 065
  10. DICLOFENAC SODIUM [Concomitant]
     Route: 065
  11. LOMOTIL [Concomitant]
     Route: 065
  12. REMICADE [Suspect]
     Indication: CROHN'S DISEASE
     Route: 042
     Dates: start: 20110818

REACTIONS (2)
  - HOSPITALISATION [None]
  - INFLAMMATION [None]
